FAERS Safety Report 9715903 (Version 1)
Quarter: 2013Q4

REPORT INFORMATION
  Report Type: Not Available
  Country: FR (occurrence: FR)
  Receive Date: 20131127
  Receipt Date: 20131127
  Transmission Date: 20140711
  Serious: Yes (Other)
  Sender: FDA-Public Use
  Company Number: FR-PURDUE-GBR-2013-0016401

PATIENT
  Sex: Male

DRUGS (2)
  1. OXYCONTIN LP 30 MG, COMPRIME PELLICULE A LIBERATION PROLONGEE [Suspect]
     Indication: CANCER PAIN
     Dosage: 30 MG, DAILY
     Route: 048
  2. OXYCONTIN LP 30 MG, COMPRIME PELLICULE A LIBERATION PROLONGEE [Suspect]
     Dosage: 15 UNK, UNK
     Route: 048

REACTIONS (4)
  - Drug dependence [Unknown]
  - Neck pain [Unknown]
  - Lacrimation increased [Unknown]
  - Diarrhoea [Unknown]
